FAERS Safety Report 9914979 (Version 1)
Quarter: 2014Q1

REPORT INFORMATION
  Report Type: Spontaneous
  Country: FR (occurrence: FR)
  Receive Date: 20140220
  Receipt Date: 20140220
  Transmission Date: 20141002
  Serious: Yes (Other)
  Sender: FDA-Public Use
  Company Number: PHHY2014FR018184

PATIENT
  Age: 55 Year
  Sex: Male

DRUGS (2)
  1. NEORAL [Suspect]
     Indication: ANGIOLYMPHOID HYPERPLASIA WITH EOSINOPHILIA
     Dosage: 100 MG, QD
     Route: 048
     Dates: start: 200704
  2. DOXYCYCLINE [Suspect]
     Indication: MALARIA PROPHYLAXIS
     Dosage: 100 MG, QD
     Route: 048
     Dates: start: 20131024, end: 20131028

REACTIONS (1)
  - Tonic convulsion [Recovered/Resolved]
